FAERS Safety Report 23571085 (Version 1)
Quarter: 2024Q1

REPORT INFORMATION
  Report Type: Spontaneous
  Country: DE (occurrence: DE)
  Receive Date: 20240227
  Receipt Date: 20240227
  Transmission Date: 20240410
  Serious: Yes (Hospitalization, Other)
  Sender: FDA-Public Use
  Company Number: DE-OTSUKA-2024_004724

PATIENT
  Sex: Female

DRUGS (1)
  1. ARIPIPRAZOLE [Suspect]
     Active Substance: ARIPIPRAZOLE
     Indication: Adjustment disorder
     Dosage: UNK
     Route: 065

REACTIONS (3)
  - Drug level above therapeutic [Unknown]
  - Suicidal ideation [Unknown]
  - Off label use [Unknown]
